FAERS Safety Report 10488121 (Version 1)
Quarter: 2014Q4

REPORT INFORMATION
  Report Type: Report from Study
  Country: US (occurrence: US)
  Receive Date: 20141002
  Receipt Date: 20141002
  Transmission Date: 20150528
  Serious: Yes (Hospitalization)
  Sender: FDA-Public Use
  Company Number: US-ABBVIE-14K-163-1289249-00

PATIENT
  Age: 64 Year
  Sex: Female
  Weight: 79.45 kg

DRUGS (3)
  1. HUMIRA [Suspect]
     Active Substance: ADALIMUMAB
     Indication: PSORIASIS
     Route: 058
  2. BACLOFEN. [Suspect]
     Active Substance: BACLOFEN
     Indication: MUSCLE SPASMS
     Route: 048
     Dates: start: 20140911, end: 20140912
  3. SKELAXIN [Concomitant]
     Active Substance: METAXALONE
     Indication: MUSCLE SPASMS

REACTIONS (4)
  - Pain in extremity [Not Recovered/Not Resolved]
  - Vaginal haemorrhage [Recovered/Resolved]
  - Peripheral swelling [Not Recovered/Not Resolved]
  - Somnolence [Recovered/Resolved]

NARRATIVE: CASE EVENT DATE: 20140912
